FAERS Safety Report 7114408-7 (Version None)
Quarter: 2010Q4

REPORT INFORMATION
  Report Type: 
  Country: None (occurrence: None)
  Receive Date: 20101119
  Receipt Date: 20101115
  Transmission Date: 20110411
  Serious: Yes (Death, Other)
  Sender: FDA-Public Use
  Company Number: US-PFIZER INC-2010148101

PATIENT
  Age: 62 Year
  Sex: Female

DRUGS (1)
  1. HEPARIN SODIUM [Suspect]
     Route: 065

REACTIONS (3)
  - CEREBRAL HAEMORRHAGE [None]
  - COMA [None]
  - HEPARIN-INDUCED THROMBOCYTOPENIA [None]
